FAERS Safety Report 9585093 (Version 1)
Quarter: 2013Q4

REPORT INFORMATION
  Report Type: Spontaneous
  Country: US (occurrence: US)
  Receive Date: 20131002
  Receipt Date: 20131002
  Transmission Date: 20140711
  Serious: No
  Sender: FDA-Public Use
  Company Number: US-AMGEN-USASP2013061802

PATIENT
  Age: 71 Year
  Sex: Female
  Weight: 72 kg

DRUGS (8)
  1. ENBREL [Suspect]
     Indication: PRODUCT USED FOR UNKNOWN INDICATION
     Dosage: 50 MG, QWK
     Route: 058
  2. FLUTICASONE [Concomitant]
     Dosage: 50 MUG, UNK
  3. VICODIN [Concomitant]
     Dosage: 5-500MG, UNK
  4. ARAVA [Concomitant]
     Dosage: 10 MG, UNK
  5. AMITRIPTYLINE [Concomitant]
     Dosage: 10 MG, UNK
  6. TURMERIC                           /01079602/ [Concomitant]
     Dosage: 500 MG, UNK
  7. MULTIVITAMINS, PLAIN [Concomitant]
     Dosage: UNK
  8. VITAMIN D3 [Concomitant]
     Dosage: 5000 UNIT, UNK

REACTIONS (4)
  - Arthralgia [Unknown]
  - Gait disturbance [Unknown]
  - Muscular weakness [Unknown]
  - Groin pain [Unknown]
